FAERS Safety Report 15345275 (Version 1)
Quarter: 2018Q3

REPORT INFORMATION
  Report Type: Spontaneous
  Country: DE (occurrence: DE)
  Receive Date: 20180903
  Receipt Date: 20180903
  Transmission Date: 20181010
  Serious: Yes (Other)
  Sender: FDA-Public Use
  Company Number: DE-PFIZER INC-2018347178

PATIENT
  Age: 45 Year
  Sex: Female

DRUGS (1)
  1. TAFIL [Suspect]
     Active Substance: ALPRAZOLAM

REACTIONS (2)
  - Suicide attempt [Unknown]
  - Insomnia [Unknown]
